FAERS Safety Report 14306849 (Version 2)
Quarter: 2018Q1

REPORT INFORMATION
  Report Type: Report from Study
  Country: US (occurrence: US)
  Receive Date: 20171220
  Receipt Date: 20180214
  Transmission Date: 20180509
  Serious: Yes (Hospitalization)
  Sender: FDA-Public Use
  Company Number: US-VIFOR (INTERNATIONAL) INC.-VIT-2017-13571

PATIENT
  Age: 82 Year
  Sex: Male

DRUGS (9)
  1. VELTASSA [Suspect]
     Active Substance: PATIROMER
     Indication: HYPERKALAEMIA
     Route: 048
     Dates: start: 20170124
  2. ONDANSETRON [Concomitant]
     Active Substance: ONDANSETRON
  3. DUTASTERIDE. [Concomitant]
     Active Substance: DUTASTERIDE
  4. DOK [Concomitant]
     Active Substance: DOCUSATE SODIUM
  5. CEFALEXIN [Concomitant]
     Active Substance: CEPHALEXIN
  6. TRAMADOL. [Concomitant]
     Active Substance: TRAMADOL
  7. MACROGOL [Concomitant]
     Active Substance: POLYETHYLENE GLYCOLS
  8. TAMSULOSIN [Concomitant]
     Active Substance: TAMSULOSIN
  9. SENNA [Concomitant]
     Active Substance: SENNA LEAF\SENNOSIDES\SENNOSIDES A AND B

REACTIONS (4)
  - Prostatitis [Unknown]
  - Hepatic cancer [Unknown]
  - Urinary retention [Unknown]
  - Drug dose omission [Unknown]

NARRATIVE: CASE EVENT DATE: 20171114
